FAERS Safety Report 14826323 (Version 1)
Quarter: 2018Q2

REPORT INFORMATION
  Report Type: Spontaneous
  Country: US (occurrence: US)
  Receive Date: 20180430
  Receipt Date: 20180430
  Transmission Date: 20180711
  Serious: No
  Sender: FDA-Public Use
  Company Number: US-PFIZER INC-2018170619

PATIENT
  Age: 40 Year
  Sex: Male

DRUGS (1)
  1. EUCRISA [Suspect]
     Active Substance: CRISABOROLE
     Dosage: UNK, AS NEEDED (APPLY TWICE DAILY IF NEEDED FOR EYELIDS AND FACE)
     Route: 061
     Dates: start: 201804

REACTIONS (1)
  - Application site pain [Unknown]
